FAERS Safety Report 11308713 (Version 2)
Quarter: 2015Q3

REPORT INFORMATION
  Report Type: Report from Study
  Country: KR (occurrence: KR)
  Receive Date: 20150724
  Receipt Date: 20150814
  Transmission Date: 20151125
  Serious: Yes (Hospitalization)
  Sender: FDA-Public Use
  Company Number: KR-AMGEN-KORNI2015073027

PATIENT
  Age: 71 Year
  Sex: Female
  Weight: 48.8 kg

DRUGS (11)
  1. PIDOGUL [Concomitant]
     Dosage: UNK
     Dates: start: 20090706
  2. WARFARIN [Concomitant]
     Active Substance: WARFARIN
     Dosage: UNK
     Dates: start: 20141225
  3. DILATREND [Concomitant]
     Active Substance: CARVEDILOL
     Dosage: UNK
     Dates: start: 20141217
  4. RHONAL [Concomitant]
     Dosage: UNK
     Dates: start: 20141217
  5. IVABRADINE [Suspect]
     Active Substance: IVABRADINE
     Indication: CARDIAC FAILURE CHRONIC
     Dosage: 10 MG, QD
     Route: 048
     Dates: start: 20141223, end: 20141226
  6. FUROSEMIDE. [Concomitant]
     Active Substance: FUROSEMIDE
     Dosage: UNK
     Dates: start: 20141223
  7. LIPITOR [Concomitant]
     Active Substance: ATORVASTATIN CALCIUM
     Dosage: UNK
     Dates: start: 20141217
  8. SENSIVAL [Concomitant]
     Dosage: UNK
     Dates: start: 20140220
  9. CAPRIL                             /00498401/ [Concomitant]
     Dosage: UNK
     Dates: start: 20141222
  10. IVABRADINE [Suspect]
     Active Substance: IVABRADINE
     Indication: OFF LABEL USE
     Dosage: 15 MG, QD
     Route: 048
     Dates: start: 20141227, end: 20150208
  11. IVABRADINE [Suspect]
     Active Substance: IVABRADINE
     Dosage: 10 MG, QD
     Route: 048
     Dates: start: 20150209, end: 20150322

REACTIONS (1)
  - Cardiac failure [Recovered/Resolved]

NARRATIVE: CASE EVENT DATE: 20150127
